FAERS Safety Report 9335850 (Version 1)
Quarter: 2013Q2

REPORT INFORMATION
  Report Type: Spontaneous
  Country: US (occurrence: US)
  Receive Date: 20130606
  Receipt Date: 20130606
  Transmission Date: 20140414
  Serious: No
  Sender: FDA-Public Use
  Company Number: US-ASTRAZENECA-2013SE37084

PATIENT
  Sex: Female

DRUGS (2)
  1. TENORMIN [Suspect]
     Route: 048
  2. EYE DROPS (UNSPECIFIED) [Concomitant]
     Indication: CATARACT OPERATION

REACTIONS (2)
  - Visual impairment [Unknown]
  - Cataract [Unknown]
